FAERS Safety Report 20773479 (Version 3)
Quarter: 2024Q2

REPORT INFORMATION
  Report Type: Report from Study
  Country: JP (occurrence: JP)
  Receive Date: 20220502
  Receipt Date: 20240527
  Transmission Date: 20240715
  Serious: Yes (Other)
  Sender: FDA-Public Use
  Company Number: JP-CELLTRION INC.-2020JP026147

PATIENT

DRUGS (11)
  1. INFLIXIMAB-DYYB [Suspect]
     Active Substance: INFLIXIMAB-DYYB
     Indication: Crohn^s disease
     Dosage: 210 MG (WEIGHT: 41.7 KG)
     Route: 041
     Dates: start: 20181225, end: 20181225
  2. INFLIXIMAB-DYYB [Suspect]
     Active Substance: INFLIXIMAB-DYYB
     Dosage: 420 MG (WEIGHT: 42.3  KG)
     Route: 041
     Dates: start: 20190218, end: 20190218
  3. INFLIXIMAB-DYYB [Suspect]
     Active Substance: INFLIXIMAB-DYYB
     Dosage: 430 MG (WEIGHT: 42.5 KG)
     Route: 041
     Dates: start: 20190416, end: 20190416
  4. INFLIXIMAB-DYYB [Suspect]
     Active Substance: INFLIXIMAB-DYYB
     Dosage: 430 MG (WEIGHT: 43 KG)
     Route: 041
     Dates: start: 20190611, end: 20190611
  5. INFLIXIMAB-DYYB [Suspect]
     Active Substance: INFLIXIMAB-DYYB
     Dosage: 430 MG (WEIGHT: 42.5 KG)
     Route: 041
     Dates: start: 20191126, end: 20191126
  6. INFLIXIMAB-DYYB [Suspect]
     Active Substance: INFLIXIMAB-DYYB
     Dosage: 225 MG (WEIGHT: 45 KG)
     Route: 041
     Dates: start: 20201207, end: 20201207
  7. INFLIXIMAB-DYYB [Suspect]
     Active Substance: INFLIXIMAB-DYYB
     Dosage: 210 MG (WEIGHT: 42KG)
     Route: 041
     Dates: start: 20211219, end: 20211219
  8. INFLIXIMAB-DYYB [Suspect]
     Active Substance: INFLIXIMAB-DYYB
     Dosage: 195 MG (WEIGHT: 36.4 KG)
     Route: 041
     Dates: start: 20230110, end: 20230110
  9. INFLIXIMAB-DYYB [Suspect]
     Active Substance: INFLIXIMAB-DYYB
     Dosage: 195 MG (WEIGHT: 39.3 KG)
     Route: 041
     Dates: start: 20240116, end: 20240116
  10. MESALAMINE [Concomitant]
     Active Substance: MESALAMINE
     Indication: Crohn^s disease
     Dosage: 2000 MG PER DAY, END DATE: 29SEP2019
     Route: 048
     Dates: end: 20190929
  11. MESALAMINE [Concomitant]
     Active Substance: MESALAMINE
     Dosage: 2.12 GRAM PER DAY
     Route: 048
     Dates: start: 20190930

REACTIONS (18)
  - Anal stenosis [Recovered/Resolved]
  - Decreased appetite [Recovered/Resolved]
  - Stomatitis [Recovered/Resolved]
  - Osteoporosis [Not Recovered/Not Resolved]
  - Heat illness [Unknown]
  - Gastrooesophageal reflux disease [Not Recovered/Not Resolved]
  - Nasopharyngitis [Unknown]
  - Malaise [Not Recovered/Not Resolved]
  - Constipation [Not Recovered/Not Resolved]
  - Dizziness [Unknown]
  - Cystitis [Recovered/Resolved]
  - Dyspepsia [Not Recovered/Not Resolved]
  - Gastrooesophageal reflux disease [Recovered/Resolved]
  - Therapeutic product effect decreased [Unknown]
  - Intentional product use issue [Unknown]
  - Off label use [Unknown]
  - Overdose [Unknown]
  - Underdose [Unknown]

NARRATIVE: CASE EVENT DATE: 20190609
